FAERS Safety Report 8272233-8 (Version None)
Quarter: 2012Q2

REPORT INFORMATION
  Report Type: 
  Country: None (occurrence: None)
  Receive Date: 20120410
  Receipt Date: 20120328
  Transmission Date: 20120825
  Serious: Yes (Other)
  Sender: FDA-Public Use
  Company Number: PHHY2011JP113020

PATIENT
  Sex: Female

DRUGS (6)
  1. FLURBIPROFEN [Concomitant]
     Route: 048
  2. IMMUNE GLOBULIN (HUMAN) [Concomitant]
     Dosage: 2 G/KG, UNK
     Route: 042
  3. IMMUNE GLOBULIN (HUMAN) [Concomitant]
     Dosage: 2 G/KG, UNK
     Route: 042
  4. NEORAL [Suspect]
     Indication: KAWASAKI'S DISEASE
     Route: 048
  5. IMMUNE GLOBULIN (HUMAN) [Concomitant]
     Dosage: 1 G/KG, UNK
     Route: 042
  6. ASPIRIN [Concomitant]

REACTIONS (4)
  - PYREXIA [None]
  - INTERLEUKIN LEVEL INCREASED [None]
  - INFLAMMATION [None]
  - SKIN EXFOLIATION [None]
